FAERS Safety Report 7123715-3 (Version None)
Quarter: 2010Q4

REPORT INFORMATION
  Report Type: 
  Country: None (occurrence: None)
  Receive Date: 20101125
  Receipt Date: 20101112
  Transmission Date: 20110411
  Serious: Yes (Hospitalization, Other)
  Sender: FDA-Public Use
  Company Number: PHHY2010BR33529

PATIENT
  Sex: Female

DRUGS (5)
  1. DIOVAN HCT [Suspect]
     Indication: HYPERTENSION
     Dosage: HALF TABLET BID
     Route: 048
  2. DIOVAN HCT [Suspect]
     Dosage: 1 TABLET
     Route: 048
  3. RIVOTRIL [Concomitant]
     Indication: SEDATIVE THERAPY
     Dosage: 25 MG, (1 TABLET AT NIGHT)
     Route: 048
  4. NEOZINE [Concomitant]
     Indication: SEDATIVE THERAPY
     Dosage: 3 DRP, BEFORE SLEEPING
     Route: 048
  5. CALCIUM [Concomitant]
     Indication: BONE DISORDER
     Dosage: HALF TABLET, BID
     Route: 048

REACTIONS (6)
  - BLOOD PRESSURE INCREASED [None]
  - HEART RATE INCREASED [None]
  - INTESTINAL PERFORATION [None]
  - INTESTINAL RESECTION [None]
  - OOPHORECTOMY [None]
  - VOMITING [None]
